FAERS Safety Report 21289106 (Version 1)
Quarter: 2022Q3

REPORT INFORMATION
  Report Type: Spontaneous
  Country: US (occurrence: US)
  Receive Date: 20220902
  Receipt Date: 20220902
  Transmission Date: 20221027
  Serious: Yes (Other)
  Sender: FDA-Public Use
  Company Number: US-ABBVIE-22K-163-4291295-00

PATIENT
  Sex: Male

DRUGS (1)
  1. IMBRUVICA [Suspect]
     Active Substance: IBRUTINIB
     Indication: Product used for unknown indication
     Route: 048
     Dates: start: 20210323, end: 202109

REACTIONS (5)
  - Malignant neoplasm progression [Unknown]
  - Ulcer [Unknown]
  - Stomatitis [Unknown]
  - Dyspnoea [Unknown]
  - Hypertension [Unknown]
